FAERS Safety Report 5886351-2 (Version None)
Quarter: 2008Q3

REPORT INFORMATION
  Report Type: 
  Country: None (occurrence: None)
  Receive Date: 20080917
  Receipt Date: 20080910
  Transmission Date: 20090109
  Serious: Yes (Other)
  Sender: FDA-Public Use
  Company Number: B0537370A

PATIENT
  Age: 73 Year
  Sex: Male

DRUGS (3)
  1. AVANDAMET [Suspect]
     Route: 065
     Dates: start: 20040101, end: 20080801
  2. VITAMIN B-12 [Concomitant]
  3. ROSIGLITAZONE [Concomitant]
     Dates: start: 20080801

REACTIONS (2)
  - ANAEMIA [None]
  - BLOOD CREATININE INCREASED [None]
